FAERS Safety Report 4581792-8 (Version None)
Quarter: 2005Q1

REPORT INFORMATION
  Report Type: 
  Country: None (occurrence: None)
  Receive Date: 20050214
  Receipt Date: 20040304
  Transmission Date: 20050727
  Serious: No
  Sender: FDA-Public Use
  Company Number: US-GLAXOSMITHKLINE-A0501177A

PATIENT
  Age: 45 Year
  Sex: Female
  Weight: 56.8 kg

DRUGS (2)
  1. LAMICTAL [Suspect]
     Indication: BIPOLAR DISORDER
     Dosage: 300MG PER DAY
     Route: 048
     Dates: start: 19990501
  2. PROZAC [Concomitant]
     Indication: BIPOLAR DISORDER
     Dosage: 20MG PER DAY
     Dates: end: 20040315

REACTIONS (1)
  - TINNITUS [None]
